FAERS Safety Report 6205416-9 (Version None)
Quarter: 2009Q2

REPORT INFORMATION
  Report Type: 
  Country: None (occurrence: None)
  Receive Date: 20090527
  Receipt Date: 20090317
  Transmission Date: 20091009
  Serious: No
  Sender: FDA-Public Use
  Company Number: US-ABBOTT-09P-163-0563304-00

PATIENT
  Sex: Male
  Weight: 124.85 kg

DRUGS (4)
  1. SIMCOR [Suspect]
     Indication: LOW DENSITY LIPOPROTEIN INCREASED
     Dosage: 500/20 MG
     Route: 048
     Dates: start: 20090129
  2. SIMCOR [Suspect]
     Indication: HIGH DENSITY LIPOPROTEIN DECREASED
  3. LISINOPRIL AND HYDROCHLOROTHIAZIDE [Concomitant]
     Indication: HYPERTENSION
     Dosage: 20/12.5 MG
  4. MELOXICAM [Concomitant]
     Indication: ARTHRALGIA
     Route: 048

REACTIONS (6)
  - CHILLS [None]
  - ERYTHEMA [None]
  - FEELING HOT [None]
  - PARAESTHESIA [None]
  - PRURITUS [None]
  - SWELLING [None]
